FAERS Safety Report 4999043-9 (Version None)
Quarter: 2006Q2

REPORT INFORMATION
  Report Type: 
  Country: None (occurrence: None)
  Receive Date: 20060509
  Receipt Date: 20060419
  Transmission Date: 20061013
  Serious: Yes (Other)
  Sender: FDA-Public Use
  Company Number: US200604003301

PATIENT
  Age: 78 Year
  Sex: Female

DRUGS (15)
  1. FORTEO [Suspect]
     Dates: start: 20041101
  2. FORTEO [Concomitant]
  3. VICODIN [Concomitant]
  4. ULTRAM [Concomitant]
  5. METHOTREXATE [Concomitant]
  6. MACROBID [Concomitant]
  7. FOLIC ACID [Concomitant]
  8. COUMADIN [Concomitant]
  9. CARBIDOPA [Concomitant]
  10. LEVODOPA [Concomitant]
  11. ARTANE [Concomitant]
  12. KLOR-CON [Concomitant]
  13. LASIX [Concomitant]
  14. PREDNISONE TAB [Concomitant]
  15. REMICADE [Concomitant]

REACTIONS (3)
  - FALL [None]
  - HIP FRACTURE [None]
  - PHARMACEUTICAL PRODUCT COMPLAINT [None]
